FAERS Safety Report 4924440-7 (Version None)
Quarter: 2006Q1

REPORT INFORMATION
  Report Type: 
  Country: None (occurrence: None)
  Receive Date: 20060227
  Receipt Date: 20060120
  Transmission Date: 20060701
  Serious: Yes (Death)
  Sender: FDA-Public Use
  Company Number: US-ROCHE-433032

PATIENT
  Age: 68 Year
  Sex: Female
  Weight: 74.8 kg

DRUGS (4)
  1. CELLCEPT [Suspect]
     Indication: IMMUNOSUPPRESSION
     Route: 048
     Dates: start: 20050727, end: 20060115
  2. RAPAMUNE [Concomitant]
     Indication: IMMUNOSUPPRESSION
     Route: 048
     Dates: start: 20050727, end: 20060115
  3. PREDNISONE [Concomitant]
     Dosage: INDICATION REPORTED AS ^STEROID^.
     Route: 048
     Dates: end: 20060115
  4. METOPROLOL [Concomitant]
     Indication: HYPERTENSION
     Route: 048
     Dates: end: 20060115

REACTIONS (1)
  - INTRACRANIAL ANEURYSM [None]
